FAERS Safety Report 10140389 (Version 2)
Quarter: 2015Q1

REPORT INFORMATION
  Report Type: Other
  Country: US (occurrence: US)
  Receive Date: 20140429
  Receipt Date: 20150209
  Transmission Date: 20150720
  Serious: Yes (Hospitalization, Other)
  Sender: FDA-Public Use
  Company Number: US-GSKPPD-2014GSK039112

PATIENT
  Age: 41 Year
  Sex: Female

DRUGS (8)
  1. BENICAR [Concomitant]
     Active Substance: OLMESARTAN MEDOXOMIL
     Route: 048
  2. CORZIDE [Concomitant]
     Active Substance: BENDROFLUMETHIAZIDE\NADOLOL
     Dosage: 40 PER 5 MG
     Route: 048
  3. ASPIRIN EC [Concomitant]
     Active Substance: ASPIRIN
     Route: 048
  4. TARKA [Concomitant]
     Active Substance: TRANDOLAPRIL\VERAPAMIL HYDROCHLORIDE
     Dosage: 4 PER 240 MG
     Route: 048
  5. PLAVIX [Concomitant]
     Active Substance: CLOPIDOGREL BISULFATE
  6. NORVASC [Concomitant]
     Active Substance: AMLODIPINE BESYLATE
     Route: 048
  7. AVANDIA [Suspect]
     Active Substance: ROSIGLITAZONE MALEATE
     Indication: DIABETES MELLITUS
     Dosage: DATES OF AVANDIA USE COULD NOT BE CONFIRMED IN RECORDS REVIEWED
     Route: 048
  8. MINOXIDIL. [Concomitant]
     Active Substance: MINOXIDIL
     Route: 048

REACTIONS (2)
  - Cerebrovascular accident [Unknown]
  - Myocardial infarction [Unknown]

NARRATIVE: CASE EVENT DATE: 20030528
